FAERS Safety Report 6728426-1 (Version None)
Quarter: 2010Q2

REPORT INFORMATION
  Report Type: 
  Country: None (occurrence: None)
  Receive Date: 20100517
  Receipt Date: 20100504
  Transmission Date: 20101027
  Serious: Yes (Life-Threatening, Hospitalization)
  Sender: FDA-Public Use
  Company Number: US-ELI_LILLY_AND_COMPANY-US201003002487

PATIENT
  Sex: Female

DRUGS (6)
  1. FORTEO [Suspect]
     Indication: OSTEOPOROSIS
     Dosage: 20 UG, UNK
     Dates: start: 20090101
  2. DIGOXIN [Concomitant]
  3. BENICAR [Concomitant]
     Dosage: 40 MG, UNKNOWN
  4. HYDROCHLOROTHIAZIDE [Concomitant]
     Dosage: 25 MG, UNKNOWN
  5. HYDRALAZINE HCL [Concomitant]
  6. ASPIRIN [Concomitant]

REACTIONS (9)
  - ADVERSE DRUG REACTION [None]
  - ATRIAL FIBRILLATION [None]
  - CONTUSION [None]
  - FALL [None]
  - HYPOXIA [None]
  - NARCOTIC INTOXICATION [None]
  - PAIN [None]
  - PNEUMOTHORAX TRAUMATIC [None]
  - RIB FRACTURE [None]
